FAERS Safety Report 19348339 (Version 2)
Quarter: 2021Q3

REPORT INFORMATION
  Report Type: Spontaneous
  Country: US (occurrence: US)
  Receive Date: 20210531
  Receipt Date: 20210823
  Transmission Date: 20211014
  Serious: Yes (Disabling, Other)
  Sender: FDA-Public Use
  Company Number: US-PURDUE PHARMA-USA-2020-0191836

PATIENT

DRUGS (1)
  1. OXYCODONE HYDROCHLORIDE (SIMILAR TO NDA 22?272) [Suspect]
     Active Substance: OXYCODONE HYDROCHLORIDE
     Indication: PRODUCT USED FOR UNKNOWN INDICATION
     Dosage: 7.5 3X DAILY
     Route: 048
     Dates: start: 200904, end: 201505

REACTIONS (6)
  - Drug dependence [Unknown]
  - Mood altered [Unknown]
  - Pain [Unknown]
  - Overdose [Recovered/Resolved]
  - Disability [Unknown]
  - Bone loss [Unknown]

NARRATIVE: CASE EVENT DATE: 200904
